FAERS Safety Report 8609398-1 (Version None)
Quarter: 2012Q3

REPORT INFORMATION
  Report Type: 
  Country: None (occurrence: None)
  Receive Date: 20120821
  Receipt Date: 20120817
  Transmission Date: 20120928
  Serious: No
  Sender: FDA-Public Use
  Company Number: 2012SP002318

PATIENT
  Age: 32 Year
  Sex: Female

DRUGS (2)
  1. LATUDA [Suspect]
     Indication: SCHIZOPHRENIA
     Route: 048
  2. ALL OTHER THERAPEUTIC PRODUCTS [Concomitant]
     Indication: PRODUCT USED FOR UNKNOWN INDICATION

REACTIONS (4)
  - PHARYNGEAL OEDEMA [None]
  - HALLUCINATION [None]
  - THROAT TIGHTNESS [None]
  - DYSPHAGIA [None]
